FAERS Safety Report 5495284-5 (Version None)
Quarter: 2007Q4

REPORT INFORMATION
  Report Type: 
  Country: None (occurrence: None)
  Receive Date: 20071024
  Receipt Date: 20071012
  Transmission Date: 20080405
  Serious: Yes (Other)
  Sender: FDA-Public Use
  Company Number: US-PFIZER INC-2007086173

PATIENT
  Age: 18 Year
  Sex: Male
  Weight: 70.3 kg

DRUGS (1)
  1. ZOLOFT [Suspect]
     Indication: ANXIETY

REACTIONS (1)
  - BLOOD LACTIC ACID INCREASED [None]
